FAERS Safety Report 18557222 (Version 1)
Quarter: 2020Q4

REPORT INFORMATION
  Report Type: Spontaneous
  Country: US (occurrence: US)
  Receive Date: 20201129
  Receipt Date: 20201129
  Transmission Date: 20210114
  Serious: No
  Sender: FDA-Public Use
  Company Number: US-SA-2020SA333150

PATIENT

DRUGS (1)
  1. DUPIXENT [Suspect]
     Active Substance: DUPILUMAB
     Indication: DERMATITIS ATOPIC
     Dosage: UNK
     Route: 058
     Dates: start: 20190212

REACTIONS (5)
  - Psychiatric symptom [Unknown]
  - Erythema [Not Recovered/Not Resolved]
  - Injection site vesicles [Unknown]
  - Tremor [Unknown]
  - Skin swelling [Not Recovered/Not Resolved]
